FAERS Safety Report 5418636-8 (Version None)
Quarter: 2007Q3

REPORT INFORMATION
  Report Type: 
  Country: None (occurrence: None)
  Receive Date: 20070817
  Receipt Date: 20050802
  Transmission Date: 20080115
  Serious: Yes (Other)
  Sender: FDA-Public Use
  Company Number: GB-PFIZER INC-2005111207

PATIENT
  Sex: Male
  Weight: 84.4 kg

DRUGS (6)
  1. ATORVASTATIN CALCIUM [Suspect]
     Indication: CORONARY ARTERY DISEASE
     Route: 048
     Dates: start: 20050704, end: 20050808
  2. SILDENAFIL CITRATE [Concomitant]
     Route: 048
  3. SIMVASTATIN [Concomitant]
     Route: 048
  4. NOVORAPID [Concomitant]
     Route: 058
  5. LANTUS [Concomitant]
     Route: 058
  6. METFORMIN HCL [Concomitant]
     Route: 048

REACTIONS (5)
  - DIZZINESS [None]
  - LACRIMATION INCREASED [None]
  - MUSCLE SPASMS [None]
  - OVERDOSE [None]
  - VISION BLURRED [None]
